FAERS Safety Report 23225268 (Version 1)
Quarter: 2023Q4

REPORT INFORMATION
  Report Type: Report from Study
  Country: US (occurrence: US)
  Receive Date: 20231124
  Receipt Date: 20231124
  Transmission Date: 20240110
  Serious: Yes (Other)
  Sender: FDA-Public Use
  Company Number: US-ABBVIE-5321950

PATIENT
  Sex: Female

DRUGS (3)
  1. SKYRIZI [Suspect]
     Active Substance: RISANKIZUMAB-RZAA
     Indication: Psoriasis
     Dosage: DISCONTINUED IN 2022
     Route: 058
     Dates: start: 20220210
  2. SKYRIZI [Suspect]
     Active Substance: RISANKIZUMAB-RZAA
     Route: 058
     Dates: start: 20220419
  3. SKYRIZI [Suspect]
     Active Substance: RISANKIZUMAB-RZAA
     Route: 058

REACTIONS (22)
  - Cataract [Recovering/Resolving]
  - Skin atrophy [Unknown]
  - Peripheral vascular disorder [Unknown]
  - Weight decreased [Unknown]
  - Stress [Unknown]
  - Psoriasis [Recovered/Resolved]
  - Skin disorder [Unknown]
  - Psoriasis [Recovering/Resolving]
  - Insomnia [Not Recovered/Not Resolved]
  - Glycosylated haemoglobin increased [Unknown]
  - Abdominal discomfort [Recovered/Resolved]
  - Vitreous floaters [Unknown]
  - Blood glucose increased [Unknown]
  - Pain in extremity [Recovered/Resolved]
  - Psoriatic arthropathy [Unknown]
  - Sleep disorder [Unknown]
  - Bone contusion [Unknown]
  - Alopecia [Not Recovered/Not Resolved]
  - Arthropathy [Unknown]
  - Astigmatism [Recovering/Resolving]
  - Macular degeneration [Recovering/Resolving]
  - Bone pain [Unknown]

NARRATIVE: CASE EVENT DATE: 20230101
